FAERS Safety Report 7275473-X (Version None)
Quarter: 2011Q1

REPORT INFORMATION
  Report Type: 
  Country: None (occurrence: None)
  Receive Date: 20110202
  Receipt Date: 20110202
  Transmission Date: 20110831
  Serious: Yes (Other)
  Sender: FDA-Public Use
  Company Number: None

PATIENT
  Sex: Female

DRUGS (1)
  1. YAZ [Suspect]
     Dosage: 3 MONTH SUPPLY
     Dates: start: 20090817

REACTIONS (3)
  - FLANK PAIN [None]
  - PRODUCT QUALITY ISSUE [None]
  - PELVIC PAIN [None]
